FAERS Safety Report 7390950-9 (Version None)
Quarter: 2011Q2

REPORT INFORMATION
  Report Type: 
  Country: None (occurrence: None)
  Receive Date: 20110404
  Receipt Date: 20110322
  Transmission Date: 20111010
  Serious: Yes (Other)
  Sender: FDA-Public Use
  Company Number: GB-RANBAXY-2011R1-43222

PATIENT
  Sex: Male
  Weight: 35.4 kg

DRUGS (4)
  1. SEROQUEL [Suspect]
     Indication: SCHIZOAFFECTIVE DISORDER
     Dosage: 300 MG, 2/1DAYS
     Route: 048
     Dates: start: 20100101
  2. AMOXICILLIN [Suspect]
     Indication: PRODUCT USED FOR UNKNOWN INDICATION
     Dosage: 500 MG, 2/1 DAY
     Route: 048
  3. SEROQUEL [Suspect]
     Dosage: 800 MG, 1/1DAY
     Route: 048
  4. METRONIDAZOLE [Suspect]
     Indication: PRODUCT USED FOR UNKNOWN INDICATION
     Dosage: 400 MG, 2/DAYS
     Route: 065

REACTIONS (8)
  - HALLUCINATION, AUDITORY [None]
  - SUICIDAL IDEATION [None]
  - HALLUCINATION [None]
  - DRUG INTERACTION [None]
  - INTENTIONAL OVERDOSE [None]
  - DEPRESSED MOOD [None]
  - ACUTE PSYCHOSIS [None]
  - DELUSION [None]
